FAERS Safety Report 21639959 (Version 1)
Quarter: 2022Q4

REPORT INFORMATION
  Report Type: Spontaneous
  Country: FR (occurrence: FR)
  Receive Date: 20221124
  Receipt Date: 20221124
  Transmission Date: 20230113
  Serious: Yes (Hospitalization)
  Sender: FDA-Public Use
  Company Number: None

PATIENT
  Age: 64 Year
  Sex: Female

DRUGS (1)
  1. OXYCODONE HYDROCHLORIDE [Suspect]
     Active Substance: OXYCODONE HYDROCHLORIDE
     Indication: Bone pain
     Dosage: 3 DOSAGE FORM, DAILY
     Route: 048
     Dates: start: 20220925, end: 20220925

REACTIONS (4)
  - Accidental overdose [Recovered/Resolved]
  - Somnolence [Recovered/Resolved]
  - Miosis [Recovered/Resolved]
  - Respiratory distress [Recovered/Resolved]

NARRATIVE: CASE EVENT DATE: 20220925
